FAERS Safety Report 8820097 (Version 2)
Quarter: 2012Q4

REPORT INFORMATION
  Report Type: 
  Country: GB (occurrence: GB)
  Receive Date: 20121001
  Receipt Date: 20121011
  Transmission Date: 20130627
  Serious: Yes (Disabling)
  Sender: FDA-Public Use
  Company Number: GB-PFIZER INC-2012238532

PATIENT
  Age: 68 Year
  Weight: 96 kg

DRUGS (3)
  1. ATORVASTATIN [Suspect]
     Indication: BLOOD CHOLESTEROL INCREASED
     Dosage: 10 mg, 1x/day
     Route: 048
     Dates: start: 20120227, end: 20120815
  2. BENDROFLUMETHIAZIDE [Concomitant]
     Indication: HYPERTENSION
     Dosage: 2.5 mg, daily
     Route: 048
     Dates: start: 2010
  3. LISINOPRIL [Concomitant]
     Indication: HYPERTENSION
     Dosage: 10mg, daily
     Route: 048
     Dates: start: 2010

REACTIONS (3)
  - Pain [Not Recovered/Not Resolved]
  - Pain in extremity [Not Recovered/Not Resolved]
  - Hypoaesthesia [Not Recovered/Not Resolved]
